FAERS Safety Report 11217589 (Version 1)
Quarter: 2015Q2

REPORT INFORMATION
  Report Type: Spontaneous
  Country: US (occurrence: None)
  Receive Date: 20150623
  Receipt Date: 20150623
  Transmission Date: 20150821
  Serious: Yes (Other)
  Sender: FDA-Public Use
  Company Number: 1224850-2015-00044

PATIENT
  Age: 77 Year
  Sex: Female

DRUGS (15)
  1. LIBERTY CYCLER [Concomitant]
     Active Substance: DEVICE
  2. CALCIUM ACETATE. [Suspect]
     Active Substance: CALCIUM ACETATE
     Indication: HYPERPHOSPHATAEMIA
     Dosage: 2 CAPSULES, BID
  3. INSULIN [Concomitant]
     Active Substance: INSULIN NOS
  4. CARVEDILOL. [Concomitant]
     Active Substance: CARVEDILOL
  5. VITAMIN D3 [Concomitant]
     Active Substance: CHOLECALCIFEROL
  6. LIBERTY CYCLER SET [Concomitant]
     Active Substance: DEVICE
  7. TEMAZEPAM. [Concomitant]
     Active Substance: TEMAZEPAM
  8. DELFLEX [Concomitant]
     Active Substance: CALCIUM CHLORIDE\DEXTROSE MONOHYDRATE\MAGNESIUM CHLORIDE\SODIUM CHLORIDE\SODIUM LACTATE
  9. NEPHROCAP [Concomitant]
  10. OMEPRAZOLE. [Concomitant]
     Active Substance: OMEPRAZOLE
  11. ALPRAZOLAM. [Concomitant]
     Active Substance: ALPRAZOLAM
  12. CALCITRIOL. [Concomitant]
     Active Substance: CALCITRIOL
  13. CITALOPRAM [Concomitant]
     Active Substance: CITALOPRAM HYDROBROMIDE
  14. PRAVASTATIN [Concomitant]
     Active Substance: PRAVASTATIN\PRAVASTATIN SODIUM
  15. TOREMIDE [Concomitant]

REACTIONS (2)
  - Depressed level of consciousness [None]
  - Blood glucose decreased [None]

NARRATIVE: CASE EVENT DATE: 20150519
